FAERS Safety Report 25033245 (Version 10)
Quarter: 2025Q3

REPORT INFORMATION
  Report Type: Report from Study
  Country: US (occurrence: US)
  Receive Date: 20250303
  Receipt Date: 20250808
  Transmission Date: 20251021
  Serious: Yes (Death, Other)
  Sender: SAREPTA THERAPEUTICS
  Company Number: US-SAREPTA THERAPEUTICS INC.-SRP2025-005633

PATIENT
  Age: 16 Year
  Sex: Male
  Weight: 72.9 kg

DRUGS (10)
  1. ELEVIDYS [Suspect]
     Active Substance: DELANDISTROGENE MOXEPARVOVEC-ROKL
     Indication: Duchenne muscular dystrophy
     Route: 042
     Dates: start: 20241206, end: 20241206
  2. PREDNISONE [Concomitant]
     Active Substance: PREDNISONE
     Indication: Hepatotoxicity
     Route: 048
     Dates: start: 20250127
  3. PREDNISONE [Concomitant]
     Active Substance: PREDNISONE
     Indication: Duchenne muscular dystrophy
  4. PREDNISONE [Concomitant]
     Active Substance: PREDNISONE
     Dosage: 60 MILLIGRAM, QD
     Dates: start: 20250213, end: 20250217
  5. PREDNISONE [Concomitant]
     Active Substance: PREDNISONE
     Dosage: 20 MILLIGRAM, QD
  6. PREDNISONE [Concomitant]
     Active Substance: PREDNISONE
     Route: 048
     Dates: start: 202310, end: 20250121
  7. PREDNISONE [Concomitant]
     Active Substance: PREDNISONE
     Dosage: 40 MILLIGRAM, QD
     Dates: start: 20250218
  8. ENALAPRIL [Concomitant]
     Active Substance: ENALAPRIL
     Indication: Duchenne muscular dystrophy
     Dosage: 2.5 MILLIGRAM, QD
     Route: 048
     Dates: start: 201809, end: 20250210
  9. FLUOXETINE [Concomitant]
     Active Substance: FLUOXETINE HYDROCHLORIDE
     Indication: Anxiety
     Dosage: 40 MILLIGRAM, QD
     Route: 048
     Dates: start: 201708, end: 20250223
  10. CLONIDINE [Concomitant]
     Active Substance: CLONIDINE
     Indication: Sleep disorder
     Dosage: 0.1 MILLIGRAM, QD
     Route: 048
     Dates: start: 201910, end: 20250224

REACTIONS (3)
  - Acute hepatic failure [Fatal]
  - Haemorrhage intracranial [Fatal]
  - Cytomegalovirus infection [Not Recovered/Not Resolved]

NARRATIVE: CASE EVENT DATE: 20250207
